FAERS Safety Report 9418261 (Version 1)
Quarter: 2013Q3

REPORT INFORMATION
  Report Type: Spontaneous
  Country: US (occurrence: US)
  Receive Date: 20130724
  Receipt Date: 20130724
  Transmission Date: 20140515
  Serious: Yes (Congenital Anomaly, Other)
  Sender: FDA-Public Use
  Company Number: US-RB-056347-13

PATIENT
  Age: 0 None
  Sex: Male

DRUGS (2)
  1. SUBOXONE TABLET [Suspect]
     Dosage: DOSING DETAILS UNKNOWN; VARIOUS SIZES AND DOSES THROUGHOUT THE PREGNANCY
     Route: 064
     Dates: start: 201006, end: 20110220
  2. SUBOXONE TABLET [Suspect]
     Indication: DRUG DEPENDENCE
     Dosage: DOSING DETAILS UNKNOWN; VARIOUS SIZES AND DOSES
     Route: 063
     Dates: start: 201102, end: 201102

REACTIONS (8)
  - Foetal exposure during pregnancy [Recovered/Resolved]
  - Premature delivery [Recovered/Resolved]
  - Low birth weight baby [Recovered/Resolved]
  - Hypoplastic left heart syndrome [Not Recovered/Not Resolved]
  - Cytogenetic abnormality [Not Recovered/Not Resolved]
  - Constricted ear deformity [Not Recovered/Not Resolved]
  - Deafness unilateral [Not Recovered/Not Resolved]
  - Exposure during breast feeding [Recovered/Resolved]
